FAERS Safety Report 15640717 (Version 11)
Quarter: 2024Q4

REPORT INFORMATION
  Report Type: Spontaneous
  Country: US (occurrence: US)
  Receive Date: 20181120
  Receipt Date: 20241227
  Transmission Date: 20250115
  Serious: Yes (Other)
  Sender: PFIZER
  Company Number: US-PFIZER INC-2018474604

PATIENT
  Age: 7 Month
  Sex: Male
  Weight: 17 kg

DRUGS (3)
  1. BENEFIX [Suspect]
     Active Substance: COAGULATION FACTOR IX RECOMBINANT HUMAN\ISOPROPYL ALCOHOL
     Indication: Factor IX deficiency
     Dosage: 1500 UNITS (+5%) = 100 UNITS/KG DAILY ON DEMAND FOR A BLEED
  2. BENEFIX [Suspect]
     Active Substance: COAGULATION FACTOR IX RECOMBINANT HUMAN\ISOPROPYL ALCOHOL
     Dosage: 1700 UNITS (+5%) = 100 UNITS/KG DAILY AND THEN EVERY OTHER DAY UNTIL 24APR2021
     Dates: start: 20210414
  3. BENEFIX [Suspect]
     Active Substance: COAGULATION FACTOR IX RECOMBINANT HUMAN\ISOPROPYL ALCOHOL
     Dosage: 2600 UNITS (+5%) = 100 UNITS/KG DAILY ON DEMAND

REACTIONS (5)
  - Lip haemorrhage [Unknown]
  - Haemorrhage [Not Recovered/Not Resolved]
  - Haematoma [Unknown]
  - Haemorrhage [Unknown]
  - Fall [Unknown]
